FAERS Safety Report 6985991-7 (Version None)
Quarter: 2010Q3

REPORT INFORMATION
  Report Type: 
  Country: None (occurrence: None)
  Receive Date: 20100915
  Receipt Date: 20100906
  Transmission Date: 20110219
  Serious: Yes (Hospitalization)
  Sender: FDA-Public Use
  Company Number: JP-AMGEN-US347464

PATIENT
  Sex: Female
  Weight: 39 kg

DRUGS (14)
  1. ENBREL [Suspect]
     Indication: RHEUMATOID ARTHRITIS
     Route: 058
     Dates: start: 20080522, end: 20080701
  2. ENBREL [Suspect]
     Route: 058
     Dates: start: 20080704, end: 20081020
  3. ENBREL [Suspect]
     Route: 058
     Dates: start: 20081114, end: 20100112
  4. ENBREL [Suspect]
     Route: 058
     Dates: start: 20100430
  5. PREDNISOLONE [Suspect]
     Indication: RHEUMATOID ARTHRITIS
     Route: 048
     Dates: start: 20060127
  6. PREDNISOLONE [Suspect]
     Route: 048
     Dates: start: 20090613, end: 20091225
  7. CELECOXIB [Suspect]
     Indication: RHEUMATOID ARTHRITIS
     Route: 048
     Dates: start: 20080606
  8. COTRIM [Concomitant]
  9. PROTECADIN [Concomitant]
     Route: 048
     Dates: start: 20071109
  10. D ALFA [Concomitant]
     Route: 048
     Dates: start: 20080620
  11. CLARITHROMYCIN [Concomitant]
  12. BIOFERMIN [Concomitant]
  13. TACROLIMUS [Concomitant]
     Indication: RHEUMATOID ARTHRITIS
     Route: 048
     Dates: start: 20080418, end: 20080526
  14. SOLON [Concomitant]
     Route: 048
     Dates: start: 20071109

REACTIONS (3)
  - CEREBRAL INFARCTION [None]
  - PNEUMONIA [None]
  - VERTEBRAL ARTERY OCCLUSION [None]
